FAERS Safety Report 18935603 (Version 2)
Quarter: 2021Q1

REPORT INFORMATION
  Report Type: Spontaneous
  Country: US (occurrence: US)
  Receive Date: 20210224
  Receipt Date: 20210330
  Transmission Date: 20210420
  Serious: No
  Sender: FDA-Public Use
  Company Number: US-TAKEDA-2021TUS011776

PATIENT
  Sex: Male
  Weight: 132 kg

DRUGS (15)
  1. ORENCIA [Concomitant]
     Active Substance: ABATACEPT
  2. NORMAL SALINE [Concomitant]
     Active Substance: SODIUM CHLORIDE
  3. ACETAMINOPHEN. [Concomitant]
     Active Substance: ACETAMINOPHEN
  4. LMX4 [Concomitant]
     Active Substance: LIDOCAINE
  5. TRIAMCINOLONE ACETONIDE. [Concomitant]
     Active Substance: TRIAMCINOLONE ACETONIDE
  6. EPINEPHRINE. [Concomitant]
     Active Substance: EPINEPHRINE
  7. ADDERALL [Concomitant]
     Active Substance: AMPHETAMINE ASPARTATE\AMPHETAMINE SULFATE\DEXTROAMPHETAMINE SACCHARATE\DEXTROAMPHETAMINE SULFATE
  8. GAMMAGARD LIQUID [Suspect]
     Active Substance: HUMAN IMMUNOGLOBULIN G
     Indication: DERMATOMYOSITIS
     Dosage: 110 GRAM, Q4WEEKS
     Route: 042
     Dates: start: 20201124
  9. LIDOCAINE. [Concomitant]
     Active Substance: LIDOCAINE
  10. MUPIROCIN. [Concomitant]
     Active Substance: MUPIROCIN
  11. SODIUM CHLORIDE. [Concomitant]
     Active Substance: SODIUM CHLORIDE
  12. HEPARIN [Concomitant]
     Active Substance: HEPARIN SODIUM
  13. STERILE WATER [Concomitant]
     Active Substance: WATER
  14. DIPHENHYDRAMINE. [Concomitant]
     Active Substance: DIPHENHYDRAMINE
  15. ADVIL [Concomitant]
     Active Substance: IBUPROFEN

REACTIONS (3)
  - Nausea [Unknown]
  - Dizziness [Unknown]
  - Eructation [Recovering/Resolving]
